FAERS Safety Report 4389725-4 (Version None)
Quarter: 2004Q2

REPORT INFORMATION
  Report Type: 
  Country: None (occurrence: None)
  Receive Date: 20040628
  Receipt Date: 20040607
  Transmission Date: 20050107
  Serious: Yes (Hospitalization, Other)
  Sender: FDA-Public Use
  Company Number: 2004003040

PATIENT
  Age: 58 Year
  Sex: Female
  Weight: 104.3273 kg

DRUGS (88)
  1. LIPITOR [Suspect]
     Indication: CARDIOVASCULAR DISORDER
     Dosage: 80 MG (DAILY), ORAL
     Route: 048
     Dates: end: 20030214
  2. LIPITOR [Suspect]
     Indication: CORONARY ARTERY DISEASE
     Dosage: 80 MG (DAILY), ORAL
     Route: 048
     Dates: end: 20030214
  3. LIPITOR [Suspect]
     Indication: HYPERLIPIDAEMIA
     Dosage: 80 MG (DAILY), ORAL
     Route: 048
     Dates: end: 20030214
  4. GUAIFENESIN (GUAIFENESIN) [Suspect]
     Indication: COUGH
  5. ALL OTHER THERAPEUTIC PRODUCTS (ALL OTHER THERAPEUTIC PRODUCTS) [Suspect]
     Indication: ILL-DEFINED DISORDER
     Dates: start: 20030101
  6. MORPHINE SULFATE [Suspect]
     Indication: PAIN
     Dates: end: 20030101
  7. HYDROCODONE BITARTRATE [Suspect]
     Indication: ILL-DEFINED DISORDER
  8. PROMETHAZINE HYDROCHLORIDE TAB [Suspect]
     Indication: ILL-DEFINED DISORDER
  9. HEPARIN [Concomitant]
  10. INSULIN [Concomitant]
  11. FUROSEMIDE [Concomitant]
  12. VALSARTAN (VALSARTAN) [Concomitant]
  13. CITALOPRAM HYDROBROMIDE (CITALOPRAM HYDROBROMIDE) [Concomitant]
  14. ACETYLSALICYLIC ACID SRT [Concomitant]
  15. ESCITALOPRAM (ESCITALOPRAM) [Concomitant]
  16. OXYCOCET (PARACETAMOL, OXYCODONE HYDROCHLORIDE) [Concomitant]
  17. PANTOPRAZOLE (PANTOPRAZOLE) [Concomitant]
  18. PROPOXYPHENE HCL [Concomitant]
  19. EZETIMIBE (EZETIMIBE) [Concomitant]
  20. IBUPROFEN [Concomitant]
  21. SALINE MIXTURE (SODIUM CITRATE, AMMONIUM ACETATE, SODIUM NITRITE, CAMP [Concomitant]
  22. PHENOL (PHENOL) [Concomitant]
  23. TUSSIONEX ^LABQUIFAR^ (BROMHEXINE HYDROCHLORIDE, ZIPEPROL) [Concomitant]
  24. ALPRAZOLAM [Concomitant]
  25. VANCOMYCIN [Concomitant]
  26. VICODIN [Concomitant]
  27. GABAPENTIN [Concomitant]
  28. TIAGABINE HYDROCHLORIDE (TIAGABINE HYDROCHLORIDE) [Concomitant]
  29. LINEZOLID (LINEZOLID) [Concomitant]
  30. HYDROMORPHONE HCL [Concomitant]
  31. MORPHINE SULFATE [Concomitant]
  32. NITROFURANTOIN [Concomitant]
  33. ALL OTHER THERAPEUTIC PRODUCTS (ALL OTHER THERAPEUTIC PRODUCTS) [Concomitant]
  34. BACTRIM [Concomitant]
  35. TRIMETHOBENZAMIDE HYDROCHLORIDE (TRIMETHOBENZAMIDE HYDROCHLORIDE) [Concomitant]
  36. PROPACET 100 [Concomitant]
  37. NITROGLYCERIN [Concomitant]
  38. CELECOXIB (CELECOXIB) [Concomitant]
  39. TOCOPHEROL CONCENTRATE CAP [Concomitant]
  40. HUMAN MIXTARD (INSULIN HUMAN, INSULIN HUMAN INJECTION, ISOPHANE) [Concomitant]
  41. NICOTINIC ACID [Concomitant]
  42. CYANOCOBALAMIN (CYANOCOBALAMIN) [Concomitant]
  43. GARLIC (GARLIC) [Concomitant]
  44. CHOLESTEROL- AND TRIGLYCERIDE REDUCERS (CHOLESTEROL- AND TRIGLYCERIDE [Concomitant]
  45. CARDIAC THERAPY (CARDIAC THERAPY) [Concomitant]
  46. ANTIBIOTICS (ANTIBIOTICS) [Concomitant]
  47. TROGLITAZONE (TROGLITAZONE) [Concomitant]
  48. ATENOLOL [Concomitant]
  49. METOPROLOL (METOPROLOL) [Concomitant]
  50. DOCUSATE SODIUM (DOCUSATE SODIUM) [Concomitant]
  51. LISINOPRIL [Concomitant]
  52. CLOPIDOGREL BISULFATE [Concomitant]
  53. ALL OTHER THERAPEUTIC PRODUCTS (ALL OTHER THERAPEUTIC PRODUCTS) [Concomitant]
  54. ACCUZYME (PAPAIN, UREA) [Concomitant]
  55. CHLORINATED SODA SOLUTION (CHLORINATED SODA SOLUTION) [Concomitant]
  56. COLLAGENASE (COLLAGENASE) [Concomitant]
  57. ONDANSETRON HCL [Concomitant]
  58. ZOLPIDEM TARTRATE [Concomitant]
  59. MEPERIDINE HYDROCHLORIDE [Concomitant]
  60. MIDAZOLAM HCL [Concomitant]
  61. CLAVULIN (AMOXICILLIN TRIHYDRATE, CLAVULANATE POTASSIUM) [Concomitant]
  62. VANCOMYCIN [Concomitant]
  63. UNACID (AMPICILLIN SODIUM, SULBACTAM SODIUM) [Concomitant]
  64. FLAGYL COMPAK (METRONIDAZOLE, NYSTATIN) [Concomitant]
  65. CIPROFLOXACIN HCL [Concomitant]
  66. PARACETAMOL (PARACETAMOL) [Concomitant]
  67. ENOXAPARIN SODIUM [Concomitant]
  68. HYDROMORPHONE HCL [Concomitant]
  69. DIPHENHYDRAMINE HCL [Concomitant]
  70. TEMAZEPAM [Concomitant]
  71. MULTIVITAMINS (ASCORBIC ACID, ERGOCALCIFEROL, FOLIC ACID, NICOTINAMIDE [Concomitant]
  72. PIPERACILLIN [Concomitant]
  73. ALL OTHER THERAPEUTIC PRODUCTS (ALL OTHER THERAPEUTIC PRODUCTS) [Concomitant]
  74. VENLAFAXINE HCL [Concomitant]
  75. ENALAPRIL MALEATE [Concomitant]
  76. MUPIROCIN (MUPIROCIN) [Concomitant]
  77. CEFTRIAXONE [Concomitant]
  78. RIMANTADINE HYDROCHLORIDE (RIMANTADINE HYDROCHLORIDE) [Concomitant]
  79. SALBUTAMOL (SALBUTAMOL) [Concomitant]
  80. BENZONATATE (BENZONATATE) [Concomitant]
  81. CALCIUM (CALCIUM) [Concomitant]
  82. ERGOCALCIFEROL (ERGOCALCIFEROL) [Concomitant]
  83. LEVOFLOXACIN [Concomitant]
  84. ESCITALOPRAM (ESCITALOPRAM) [Concomitant]
  85. MAGNESIUM HYDROXIDE (MAGNESIUM HYDROXIDE) [Concomitant]
  86. BISACODYL (BISACODYL) [Concomitant]
  87. FAMOTIDINE [Concomitant]
  88. POTASSIUM CHLORIDE [Concomitant]

REACTIONS (43)
  - ABSCESS [None]
  - ANAESTHETIC COMPLICATION [None]
  - ANOREXIA [None]
  - ASTHENIA [None]
  - BLOOD ALBUMIN DECREASED [None]
  - BLOOD IRON DECREASED [None]
  - BLOODY DISCHARGE [None]
  - CREPITATIONS [None]
  - DEPRESSION [None]
  - DIFFICULTY IN WALKING [None]
  - DISORIENTATION [None]
  - DRUG LEVEL ABOVE THERAPEUTIC [None]
  - ELECTROCARDIOGRAM Q WAVE ABNORMAL [None]
  - ELECTROCARDIOGRAM ST SEGMENT ABNORMAL [None]
  - ERYTHEMA [None]
  - FEELING ABNORMAL [None]
  - FOOD AVERSION [None]
  - GAIT DISTURBANCE [None]
  - GENERAL PHYSICAL HEALTH DETERIORATION [None]
  - HAEMATOCRIT DECREASED [None]
  - HAEMOGLOBIN DECREASED [None]
  - HEADACHE [None]
  - HEPATITIS GRANULOMATOUS [None]
  - JOINT RANGE OF MOTION DECREASED [None]
  - LIVER DISORDER [None]
  - LOCALISED INFECTION [None]
  - MALAISE [None]
  - MUSCLE DISORDER [None]
  - MYOCARDIAL ISCHAEMIA [None]
  - NAUSEA [None]
  - NECROSIS [None]
  - NERVE INJURY [None]
  - PAIN [None]
  - PAIN IN EXTREMITY [None]
  - PLATELET COUNT INCREASED [None]
  - POST PROCEDURAL NAUSEA [None]
  - POST PROCEDURAL VOMITING [None]
  - PRURITUS [None]
  - PYREXIA [None]
  - RED BLOOD CELL COUNT DECREASED [None]
  - STAPHYLOCOCCAL INFECTION [None]
  - TOE AMPUTATION [None]
  - TREMOR [None]
